FAERS Safety Report 16461395 (Version 1)
Quarter: 2019Q2

REPORT INFORMATION
  Report Type: Spontaneous
  Country: CN (occurrence: CN)
  Receive Date: 20190620
  Receipt Date: 20190620
  Transmission Date: 20190711
  Serious: Yes (Other)
  Sender: FDA-Public Use
  Company Number: CN-NOVOPROD-667722

PATIENT
  Age: 62 Year
  Sex: Female
  Weight: 70.3 kg

DRUGS (1)
  1. NOVOLIN N [Suspect]
     Active Substance: INSULIN HUMAN
     Indication: DIABETES MELLITUS
     Dosage: 16 IU, BID
     Route: 058
     Dates: start: 20190519, end: 20190523

REACTIONS (4)
  - Pruritus generalised [Recovered/Resolved]
  - Face oedema [Recovered/Resolved]
  - Rash generalised [Recovered/Resolved]
  - Feeling hot [Recovered/Resolved]

NARRATIVE: CASE EVENT DATE: 20190521
